FAERS Safety Report 17014773 (Version 1)
Quarter: 2019Q4

REPORT INFORMATION
  Report Type: Spontaneous
  Country: US (occurrence: US)
  Receive Date: 20191002
  Receipt Date: 20191002
  Transmission Date: 20200122
  Serious: Yes (Hospitalization)
  Sender: FDA-Public Use
  Company Number: None

PATIENT
  Age: 63 Year
  Sex: Female
  Weight: 68.2 kg

DRUGS (1)
  1. OLAPARIB (AZD2281) [Suspect]
     Active Substance: OLAPARIB
     Dates: end: 20190630

REACTIONS (4)
  - Bacterial infection [None]
  - Obstruction [None]
  - Stent placement [None]
  - Liver function test abnormal [None]

NARRATIVE: CASE EVENT DATE: 20190630
